FAERS Safety Report 5142711-9 (Version None)
Quarter: 2006Q4

REPORT INFORMATION
  Report Type: 
  Country: None (occurrence: None)
  Receive Date: 20061027
  Receipt Date: 20060817
  Transmission Date: 20070319
  Serious: Yes (Other)
  Sender: FDA-Public Use
  Company Number: 2006BH012941

PATIENT
  Age: 6 Month
  Sex: Female

DRUGS (4)
  1. ACYCLOVIR [Suspect]
     Indication: INFECTION PROPHYLAXIS
     Dosage: SEE IMAGE
  2. AZATHIOPRINE [Concomitant]
  3. NEORAL [Concomitant]
  4. FLUCONAZOLE [Concomitant]

REACTIONS (10)
  - AGITATION [None]
  - CEREBRAL DISORDER [None]
  - CHOREOATHETOSIS [None]
  - COMA [None]
  - DRUG LEVEL ABOVE THERAPEUTIC [None]
  - DRUG LEVEL BELOW THERAPEUTIC [None]
  - ELECTROENCEPHALOGRAM ABNORMAL [None]
  - ENCEPHALOPATHY [None]
  - EYE MOVEMENT DISORDER [None]
  - NEUROTOXICITY [None]
